FAERS Safety Report 13184806 (Version 1)
Quarter: 2017Q1

REPORT INFORMATION
  Report Type: Report from Study
  Country: AT (occurrence: AT)
  Receive Date: 20170203
  Receipt Date: 20170203
  Transmission Date: 20170428
  Serious: Yes (Death, Other)
  Sender: FDA-Public Use
  Company Number: AT-TEVA-735003ISR

PATIENT
  Age: 52 Year
  Sex: Female

DRUGS (3)
  1. RISPERIDONE. [Interacting]
     Active Substance: RISPERIDONE
     Route: 065
  2. MIRTAZAPINE. [Suspect]
     Active Substance: MIRTAZAPINE
     Route: 065
  3. FLUPHENAZINE [Interacting]
     Active Substance: FLUPHENAZINE
     Route: 065

REACTIONS (4)
  - Hypoperfusion [Fatal]
  - Syncope [Unknown]
  - Drug interaction [Unknown]
  - Hypotension [Unknown]
